FAERS Safety Report 21481159 (Version 1)
Quarter: 2022Q4

REPORT INFORMATION
  Report Type: Spontaneous
  Country: US (occurrence: None)
  Receive Date: 20221019
  Receipt Date: 20221019
  Transmission Date: 20230113
  Serious: Yes (Hospitalization)
  Sender: FDA-Public Use
  Company Number: None

PATIENT
  Age: 16 Year
  Sex: Male
  Weight: 152 kg

DRUGS (6)
  1. CYTARABINE [Suspect]
     Active Substance: CYTARABINE
     Dates: end: 20220901
  2. DAUNORUBICIN [Suspect]
     Active Substance: DAUNORUBICIN
     Dates: end: 20220909
  3. METHOTREXATE [Suspect]
     Active Substance: METHOTREXATE
     Dates: end: 20220909
  4. ONCASPAR [Suspect]
     Active Substance: PEGASPARGASE
     Dates: end: 20220905
  5. PREDNISOLONE [Suspect]
     Active Substance: PREDNISOLONE
     Dates: end: 20220915
  6. VINCRISTINE SULFATE [Suspect]
     Active Substance: VINCRISTINE SULFATE
     Dates: end: 20220909

REACTIONS (7)
  - Skin lesion [None]
  - Erythema [None]
  - Pyrexia [None]
  - Tachycardia [None]
  - Hypotension [None]
  - Haemoglobin decreased [None]
  - Blood culture positive [None]

NARRATIVE: CASE EVENT DATE: 20220915
